FAERS Safety Report 4694681-5 (Version None)
Quarter: 2005Q2

REPORT INFORMATION
  Report Type: 
  Country: None (occurrence: None)
  Receive Date: 20050620
  Receipt Date: 20050614
  Transmission Date: 20051028
  Serious: Yes (Other)
  Sender: FDA-Public Use
  Company Number: AU-GLAXOSMITHKLINE-B0384479A

PATIENT
  Age: 3 Month
  Sex: Male
  Weight: 3 kg

DRUGS (4)
  1. FLUCLOXACILLIN [Suspect]
     Dosage: 1G PER DAY
     Route: 042
     Dates: start: 19821228, end: 19830105
  2. SILVER SULPHADIAZINE [Suspect]
     Indication: CONGENITAL ANOMALY
     Route: 061
     Dates: start: 19821217, end: 19830104
  3. AMOXICILLIN TRIHYDRATE [Suspect]
     Dosage: 325MG PER DAY
     Route: 048
     Dates: start: 19821217, end: 19821228
  4. TOBRAMYCIN [Suspect]
     Dosage: 21MG PER DAY
     Route: 042
     Dates: start: 19821228, end: 19830105

REACTIONS (1)
  - HAEMOLYTIC ANAEMIA [None]
